FAERS Safety Report 25657609 (Version 1)
Quarter: 2025Q3

REPORT INFORMATION
  Report Type: Spontaneous
  Country: US (occurrence: US)
  Receive Date: 20250808
  Receipt Date: 20250808
  Transmission Date: 20251021
  Serious: Yes (Hospitalization)
  Sender: COREPHARMA LLC
  Company Number: US-CorePharma LLC-2182089

PATIENT
  Age: 71 Year
  Sex: Male

DRUGS (11)
  1. LISINOPRIL [Suspect]
     Active Substance: LISINOPRIL
     Indication: Product used for unknown indication
  2. DUPIXENT [Suspect]
     Active Substance: DUPILUMAB
     Dates: start: 20231121
  3. MONTELUKAST [Concomitant]
     Active Substance: MONTELUKAST
  4. EZETIMIBE [Concomitant]
     Active Substance: EZETIMIBE
  5. LANSOPRAZOLE [Concomitant]
     Active Substance: LANSOPRAZOLE
  6. CELECOXIB [Concomitant]
     Active Substance: CELECOXIB
  7. CLONIDINE [Concomitant]
     Active Substance: CLONIDINE
  8. Vilanterol trifenatate ?(Trelegy Ellipta) [Concomitant]
  9. UMECLIDINIUM BROMIDE [Concomitant]
     Active Substance: UMECLIDINIUM BROMIDE
  10. FLUTICASONE FUROATE [Concomitant]
     Active Substance: FLUTICASONE FUROATE
  11. HYDRALAZINE [Suspect]
     Active Substance: HYDRALAZINE HYDROCHLORIDE

REACTIONS (1)
  - Adverse drug reaction [Unknown]

NARRATIVE: CASE EVENT DATE: 20250620
